FAERS Safety Report 4787184-0 (Version None)
Quarter: 2005Q4

REPORT INFORMATION
  Report Type: 
  Country: None (occurrence: None)
  Receive Date: 20051004
  Receipt Date: 20050928
  Transmission Date: 20060501
  Serious: Yes (Disabling, Other)
  Sender: FDA-Public Use
  Company Number: GB-MERCK-0509GBR00187

PATIENT
  Age: 75 Year
  Sex: Male

DRUGS (5)
  1. ZOCOR [Suspect]
     Indication: BLOOD CHOLESTEROL INCREASED
     Route: 048
     Dates: start: 20050901, end: 20050904
  2. SPIRONOLACTONE [Concomitant]
     Route: 048
  3. RAMIPRIL [Concomitant]
     Route: 048
  4. METRONIDAZOLE [Concomitant]
     Route: 065
  5. [THERAPY UNSPECIFIED] [Concomitant]
     Route: 065

REACTIONS (2)
  - ERYTHEMA [None]
  - RASH MACULAR [None]
